FAERS Safety Report 15012010 (Version 2)
Quarter: 2018Q3

REPORT INFORMATION
  Report Type: Spontaneous
  Country: US (occurrence: US)
  Receive Date: 20180614
  Receipt Date: 20180917
  Transmission Date: 20181010
  Serious: Yes (Other)
  Sender: FDA-Public Use
  Company Number: US-PFIZER INC-2018241160

PATIENT
  Sex: Female

DRUGS (2)
  1. DEXTROSE. [Suspect]
     Active Substance: DEXTROSE
     Indication: CAESAREAN SECTION
     Dosage: UNK
  2. BUPIVACAINE HCL [Suspect]
     Active Substance: BUPIVACAINE HYDROCHLORIDE
     Indication: CAESAREAN SECTION
     Dosage: UNK

REACTIONS (2)
  - Feeling abnormal [Unknown]
  - Product preparation error [Unknown]
